FAERS Safety Report 10262511 (Version 1)
Quarter: 2014Q2

REPORT INFORMATION
  Report Type: Spontaneous
  Country: US (occurrence: US)
  Receive Date: 20140626
  Receipt Date: 20140626
  Transmission Date: 20141212
  Serious: Yes (Hospitalization)
  Sender: FDA-Public Use
  Company Number: US-B.I. PHARMACEUTICALS,INC./RIDGEFIELD-2014-BI-28402BP

PATIENT
  Age: 94 Year
  Sex: Male
  Weight: 70 kg

DRUGS (3)
  1. FLOMAX [Suspect]
     Indication: BENIGN PROSTATIC HYPERPLASIA
     Dosage: 0.8 MG
     Route: 048
     Dates: end: 201405
  2. COUMADIN [Concomitant]
     Route: 048
     Dates: start: 201405
  3. COUMADIN [Concomitant]
     Route: 048
     Dates: start: 201405

REACTIONS (1)
  - Diarrhoea [Not Recovered/Not Resolved]
